FAERS Safety Report 7455293-3 (Version None)
Quarter: 2011Q2

REPORT INFORMATION
  Report Type: 
  Country: None (occurrence: None)
  Receive Date: 20110503
  Receipt Date: 20110429
  Transmission Date: 20111010
  Serious: Yes (Life-Threatening, Hospitalization, Other)
  Sender: FDA-Public Use
  Company Number: FR-PFIZER INC-2011092386

PATIENT
  Age: 45 Year
  Sex: Female

DRUGS (8)
  1. TAHOR [Concomitant]
  2. LEXOMIL [Concomitant]
  3. RIVOTRIL [Concomitant]
     Indication: EPILEPSY
     Dosage: 50 MG, 1X/DAY
     Route: 048
  4. ZOLPIDEM [Concomitant]
     Indication: SLEEP DISORDER
     Dosage: 28 DF, 1X/DAY
  5. STILNOX [Concomitant]
  6. MYOLASTAN [Concomitant]
     Indication: MUSCLE SPASMS
     Dosage: 50 MG TABLET, 20 DF, 1X/DAY
     Route: 048
  7. NEURONTIN [Suspect]
     Indication: EPILEPSY
     Dosage: 300 MG CAPSULE, 70 DOSAGE FORMS IN ONE INTAKE
     Route: 048
  8. XANAX [Concomitant]

REACTIONS (3)
  - HYPERTENSION [None]
  - SUICIDE ATTEMPT [None]
  - ALCOHOL POISONING [None]
